FAERS Safety Report 19992191 (Version 7)
Quarter: 2022Q3

REPORT INFORMATION
  Report Type: Report from Study
  Country: CA (occurrence: CA)
  Receive Date: 20211025
  Receipt Date: 20220926
  Transmission Date: 20221027
  Serious: Yes (Hospitalization, Other)
  Sender: FDA-Public Use
  Company Number: CA-NOVARTISPH-NVSC2021CA136524

PATIENT
  Age: 79 Year
  Sex: Female

DRUGS (3)
  1. SANDOSTATIN LAR DEPOT [Suspect]
     Active Substance: OCTREOTIDE ACETATE
     Indication: Pancreatic neuroendocrine tumour metastatic
     Dosage: 30 MG, Q4W
     Route: 030
     Dates: start: 20120711
  2. SANDOSTATIN LAR DEPOT [Suspect]
     Active Substance: OCTREOTIDE ACETATE
  3. SANDOSTATIN LAR DEPOT [Suspect]
     Active Substance: OCTREOTIDE ACETATE

REACTIONS (13)
  - Fall [Unknown]
  - Ligament rupture [Unknown]
  - Joint swelling [Unknown]
  - Cerebral haemorrhage [Unknown]
  - Thrombosis [Unknown]
  - Dementia [Unknown]
  - Eye contusion [Unknown]
  - Swelling of eyelid [Unknown]
  - Ocular hyperaemia [Unknown]
  - Eye pain [Unknown]
  - Blood pressure abnormal [Unknown]
  - Cognitive disorder [Unknown]
  - General physical health deterioration [Unknown]

NARRATIVE: CASE EVENT DATE: 20210614
